FAERS Safety Report 7386609-4 (Version None)
Quarter: 2011Q1

REPORT INFORMATION
  Report Type: 
  Country: None (occurrence: None)
  Receive Date: 20110331
  Receipt Date: 20110329
  Transmission Date: 20110831
  Serious: Yes (Other)
  Sender: FDA-Public Use
  Company Number: BR-ROCHE-768039

PATIENT
  Sex: Male
  Weight: 61 kg

DRUGS (1)
  1. ROACCUTAN [Suspect]
     Indication: ACNE
     Dosage: DOSE: 20 MG/CAP FREQUENCY: 1 CAP/DAY
     Route: 065
     Dates: start: 20101201

REACTIONS (1)
  - HERPES ZOSTER [None]
